FAERS Safety Report 4351101-8 (Version None)
Quarter: 2004Q2

REPORT INFORMATION
  Report Type: 
  Country: None (occurrence: None)
  Receive Date: 20040427
  Receipt Date: 20040414
  Transmission Date: 20050107
  Serious: Yes (Hospitalization)
  Sender: FDA-Public Use
  Company Number: 2004209397FR

PATIENT
  Age: 9 Year
  Sex: Female
  Weight: 17 kg

DRUGS (2)
  1. GENOTROPIN [Suspect]
     Indication: FOETAL GROWTH RETARDATION
     Dosage: SUBCUTANEOUS
     Route: 058
     Dates: start: 20021122
  2. LEUPROLIDE ACETATE [Suspect]
     Indication: PRECOCIOUS PUBERTY
     Dates: start: 20021122

REACTIONS (1)
  - FIBROUS DYSPLASIA OF BONE [None]
